FAERS Safety Report 25431128 (Version 3)
Quarter: 2025Q3

REPORT INFORMATION
  Report Type: Spontaneous
  Country: US (occurrence: US)
  Receive Date: 20250613
  Receipt Date: 20250820
  Transmission Date: 20251020
  Serious: No
  Sender: SANOFI AVENTIS
  Company Number: US-SA-2025SA166192

PATIENT
  Age: 63 Year
  Sex: Female

DRUGS (9)
  1. KEVZARA [Suspect]
     Active Substance: SARILUMAB
     Indication: Breast cancer
     Dosage: 200 MG, QOW
     Route: 058
     Dates: start: 20250522
  2. PREDNISONE [Concomitant]
     Active Substance: PREDNISONE
  3. FOLIC ACID [Concomitant]
     Active Substance: FOLIC ACID
  4. LISINOPRIL [Concomitant]
     Active Substance: LISINOPRIL
  5. METHOTREXATE [Concomitant]
     Active Substance: METHOTREXATE
  6. MOUNJARO [Concomitant]
     Active Substance: TIRZEPATIDE
  7. VITAMIN D NOS [Concomitant]
     Active Substance: CHOLECALCIFEROL\ERGOCALCIFEROL
  8. FIBER THERAPY (CALCIUM POLYCARBOPHIL) [Concomitant]
     Active Substance: CALCIUM POLYCARBOPHIL
  9. LEVOTHYROXINE [Concomitant]
     Active Substance: LEVOTHYROXINE

REACTIONS (8)
  - Bone pain [Not Recovered/Not Resolved]
  - Myalgia [Not Recovered/Not Resolved]
  - Acne [Not Recovered/Not Resolved]
  - Scar [Not Recovered/Not Resolved]
  - Psoriasis [Not Recovered/Not Resolved]
  - Injection site bruising [Not Recovered/Not Resolved]
  - Injection site erythema [Not Recovered/Not Resolved]
  - Product use in unapproved indication [Unknown]

NARRATIVE: CASE EVENT DATE: 20250101
